FAERS Safety Report 9707193 (Version 1)
Quarter: 2013Q4

REPORT INFORMATION
  Report Type: Spontaneous
  Country: AU (occurrence: AU)
  Receive Date: 20131125
  Receipt Date: 20131125
  Transmission Date: 20140711
  Serious: Yes (Other)
  Sender: FDA-Public Use
  Company Number: AU-MYLANLABS-2013S1025637

PATIENT
  Age: 57 Year
  Sex: Male

DRUGS (4)
  1. FLUOROURACIL [Suspect]
     Indication: COLORECTAL CANCER STAGE III
     Dosage: 780MG BOLUS DOSE ON DAY 1
     Route: 065
  2. FLUOROURACIL [Suspect]
     Indication: COLORECTAL CANCER STAGE III
     Dosage: 1170MG OVER 48HOURS
     Route: 050
  3. OXALIPLATIN [Concomitant]
     Indication: COLORECTAL CANCER STAGE III
     Dosage: 165MG ON DAY 1
     Route: 065
  4. FOLINIC ACID [Concomitant]
     Indication: COLORECTAL CANCER STAGE III
     Dosage: 390MG, DAY 1 + 2
     Route: 065

REACTIONS (2)
  - Optic disc disorder [Recovering/Resolving]
  - Optic neuropathy [Recovering/Resolving]
